FAERS Safety Report 8475724-X (Version None)
Quarter: 2012Q2

REPORT INFORMATION
  Report Type: 
  Country: None (occurrence: None)
  Receive Date: 20120628
  Receipt Date: 20120620
  Transmission Date: 20120825
  Serious: Yes (Hospitalization)
  Sender: FDA-Public Use
  Company Number: FR-GLAXOSMITHKLINE-B0809414A

PATIENT
  Sex: Male

DRUGS (5)
  1. LAMICTAL [Suspect]
     Indication: EPILEPSY
     Route: 048
     Dates: start: 20120219, end: 20120401
  2. METOPROLOL TARTRATE [Concomitant]
     Indication: MYOCARDIAL ISCHAEMIA
     Dosage: 50MG TWICE PER DAY
     Route: 048
  3. VALSARTAN [Concomitant]
     Indication: HYPERTENSION
     Dosage: 80MG PER DAY
     Route: 048
  4. PLAVIX [Concomitant]
     Indication: MYOCARDIAL ISCHAEMIA
     Dosage: 75MG PER DAY
     Route: 048
  5. EZETIMIBE [Concomitant]
     Indication: DYSLIPIDAEMIA
     Dosage: 10MG PER DAY
     Route: 048

REACTIONS (9)
  - RASH MACULO-PAPULAR [None]
  - XEROSIS [None]
  - LYMPHADENOPATHY [None]
  - DRUG ERUPTION [None]
  - SEBORRHOEIC KERATOSIS [None]
  - EPIDERMAL NECROSIS [None]
  - TOXIC SKIN ERUPTION [None]
  - RASH VESICULAR [None]
  - RASH PUSTULAR [None]
